FAERS Safety Report 21332076 (Version 2)
Quarter: 2022Q3

REPORT INFORMATION
  Report Type: Report from Study
  Country: US (occurrence: US)
  Receive Date: 20220914
  Receipt Date: 20220930
  Transmission Date: 20221027
  Serious: Yes (Disabling)
  Sender: FDA-Public Use
  Company Number: US-SA-SAC20220902001731

PATIENT
  Age: 63 Year
  Sex: Female

DRUGS (3)
  1. TERIFLUNOMIDE [Suspect]
     Active Substance: TERIFLUNOMIDE
     Indication: Multiple sclerosis
     Dosage: 1 DF, QD
     Route: 048
     Dates: start: 20160223
  2. DALFAMPRIDINE [Concomitant]
     Active Substance: DALFAMPRIDINE
  3. OCREVUS [Concomitant]
     Active Substance: OCRELIZUMAB
     Dosage: CONCOMITANT PRODUCT NAME : OCREVUS SOL STRENGTH : 300MG/10ML

REACTIONS (5)
  - Gait disturbance [Unknown]
  - Fall [Not Recovered/Not Resolved]
  - Balance disorder [Unknown]
  - Upper limb fracture [Unknown]
  - Dizziness [Unknown]

NARRATIVE: CASE EVENT DATE: 20210101
